FAERS Safety Report 22002090 (Version 1)
Quarter: 2023Q1

REPORT INFORMATION
  Report Type: Other
  Country: PY (occurrence: None)
  Receive Date: 20230216
  Receipt Date: 20230216
  Transmission Date: 20230417
  Serious: Yes (Other)
  Sender: FDA-Public Use
  Company Number: PY-ROCHE-3245290

PATIENT
  Age: 9 Year
  Sex: Male
  Weight: 35.6 kg

DRUGS (2)
  1. EVRYSDI [Suspect]
     Active Substance: RISDIPLAM
     Indication: Spinal muscular atrophy
     Dosage: 6.6 MG/DL
     Route: 048
     Dates: start: 20220817
  2. IBUPROFEN [Concomitant]
     Active Substance: IBUPROFEN
     Dosage: DOSE: 7CC
     Route: 048
     Dates: start: 20121126, end: 20221129

REACTIONS (2)
  - Back pain [Recovered/Resolved]
  - Nephritis [Unknown]

NARRATIVE: CASE EVENT DATE: 20221126
